FAERS Safety Report 9170962 (Version 2)
Quarter: 2013Q1

REPORT INFORMATION
  Report Type: Spontaneous
  Country: US (occurrence: US)
  Receive Date: 20130319
  Receipt Date: 20130326
  Transmission Date: 20140127
  Serious: Yes (Other)
  Sender: FDA-Public Use
  Company Number: US-TEVA-392322USA

PATIENT
  Sex: Male

DRUGS (3)
  1. ZOLPIDEM [Suspect]
     Indication: SLEEP DISORDER
     Dosage: 10 MILLIGRAM DAILY; HS
     Dates: start: 20130312
  2. AMIODARONE [Interacting]
  3. WARFARIN [Interacting]

REACTIONS (4)
  - Abasia [Unknown]
  - Dysarthria [Unknown]
  - Eye movement disorder [Unknown]
  - Drug interaction [Unknown]
